FAERS Safety Report 21744982 (Version 1)
Quarter: 2022Q4

REPORT INFORMATION
  Report Type: Report from Study
  Country: PR (occurrence: PR)
  Receive Date: 20221219
  Receipt Date: 20221219
  Transmission Date: 20230112
  Serious: No
  Sender: FDA-Public Use
  Company Number: PR-ABBVIE-4200466

PATIENT
  Sex: Female
  Weight: 54 kg

DRUGS (4)
  1. HUMIRA [Suspect]
     Active Substance: ADALIMUMAB
     Indication: Rheumatoid arthritis
     Dosage: STRENGTH - 40 MG
     Route: 058
     Dates: start: 20190910
  2. Covid 19 vaccine [Concomitant]
     Indication: COVID-19 immunisation
     Dosage: 3RD DOSE FREQUENCY ONE IN ONCE
     Route: 030
     Dates: start: 20210905, end: 20210905
  3. Covid 19 vaccine [Concomitant]
     Indication: COVID-19 immunisation
     Dosage: 1ST DOSE FREQUENCY ONE IN ONCE
     Route: 030
     Dates: start: 20210118, end: 20210118
  4. Covid 19 vaccine [Concomitant]
     Indication: COVID-19 immunisation
     Dosage: 2ND DOSE FREQUENCY ONE IN ONCE
     Route: 030
     Dates: start: 20210208, end: 20210208

REACTIONS (5)
  - Osteoporosis [Not Recovered/Not Resolved]
  - Injection site haematoma [Recovered/Resolved]
  - Injection site erythema [Recovered/Resolved]
  - Electric shock sensation [Not Recovered/Not Resolved]
  - Injection site haemorrhage [Recovered/Resolved]

NARRATIVE: CASE EVENT DATE: 20220101
